FAERS Safety Report 5315285-7 (Version None)
Quarter: 2007Q2

REPORT INFORMATION
  Report Type: 
  Country: None (occurrence: None)
  Receive Date: 20070427
  Receipt Date: 20070420
  Transmission Date: 20071010
  Serious: Yes (Hospitalization)
  Sender: FDA-Public Use
  Company Number: 2007SP007675

PATIENT
  Age: 61 Year
  Sex: Male
  Weight: 88 kg

DRUGS (1)
  1. TEMOZOLOMIDE (S-P) [Suspect]
     Indication: GLIOBLASTOMA MULTIFORME
     Dosage: PO
     Route: 048
     Dates: start: 20061201, end: 20070118

REACTIONS (19)
  - ASTHENIA [None]
  - BLOOD SODIUM INCREASED [None]
  - BLOOD UREA DECREASED [None]
  - BLOOD UREA INCREASED [None]
  - CELLULITIS [None]
  - DEPRESSION [None]
  - FATIGUE [None]
  - HEMIPARESIS [None]
  - HYPERGLYCAEMIA [None]
  - HYPOALBUMINAEMIA [None]
  - HYPONATRAEMIA [None]
  - INSOMNIA [None]
  - LYMPHOPENIA [None]
  - MUSCULAR WEAKNESS [None]
  - MYOPATHY STEROID [None]
  - NEUROPATHY [None]
  - OEDEMA PERIPHERAL [None]
  - PAIN IN EXTREMITY [None]
  - RASH [None]
